FAERS Safety Report 7756809-X (Version None)
Quarter: 2011Q3

REPORT INFORMATION
  Report Type: 
  Country: None (occurrence: None)
  Receive Date: 20110916
  Receipt Date: 20110905
  Transmission Date: 20111222
  Serious: Yes (Death, Other)
  Sender: FDA-Public Use
  Company Number: US-JNJFOC-20110905970

PATIENT
  Sex: Female

DRUGS (1)
  1. DOXIL [Suspect]
     Indication: MULTIPLE MYELOMA
     Route: 042

REACTIONS (2)
  - DEATH [None]
  - DRUG DOSE OMISSION [None]
